FAERS Safety Report 8503489-1 (Version None)
Quarter: 2012Q3

REPORT INFORMATION
  Report Type: 
  Country: None (occurrence: None)
  Receive Date: 20120711
  Receipt Date: 20120621
  Transmission Date: 20120928
  Serious: Yes (Other)
  Sender: FDA-Public Use
  Company Number: FR-GLAXOSMITHKLINE-B0809801A

PATIENT
  Age: 33 Year
  Sex: Female
  Weight: 65 kg

DRUGS (1)
  1. LAMICTAL [Suspect]
     Indication: BIPOLAR DISORDER
     Dosage: 25MG PER DAY
     Route: 048
     Dates: start: 20110615, end: 20110701

REACTIONS (5)
  - CONJUNCTIVITIS [None]
  - PRURITUS [None]
  - BLISTER [None]
  - LYMPHADENOPATHY [None]
  - RASH GENERALISED [None]
